FAERS Safety Report 12356273 (Version 1)
Quarter: 2016Q2

REPORT INFORMATION
  Report Type: Spontaneous
  Country: None (occurrence: US)
  Receive Date: 20160511
  Receipt Date: 20160511
  Transmission Date: 20160815
  Serious: No
  Sender: FDA-Public Use
  Company Number: US-QOL MEDICAL, LLC-1051938

PATIENT
  Age: 35 Month
  Sex: Female
  Weight: 17.27 kg

DRUGS (2)
  1. SUCRAID [Suspect]
     Active Substance: SACROSIDASE
     Indication: ABDOMINAL DISTENSION
     Route: 048
     Dates: start: 20150501, end: 20151120
  2. EYE OINTMENT [Concomitant]

REACTIONS (3)
  - Flatulence [Not Recovered/Not Resolved]
  - Abdominal pain [Not Recovered/Not Resolved]
  - Decreased appetite [Not Recovered/Not Resolved]

NARRATIVE: CASE EVENT DATE: 20150801
